FAERS Safety Report 9411496 (Version 1)
Quarter: 2013Q3

REPORT INFORMATION
  Report Type: Spontaneous
  Country: US (occurrence: None)
  Receive Date: 20130718
  Receipt Date: 20130718
  Transmission Date: 20140515
  Serious: Yes (Other)
  Sender: FDA-Public Use
  Company Number: None

PATIENT
  Sex: Female

DRUGS (2)
  1. PROZAC [Suspect]
     Indication: BIPOLAR I DISORDER
     Dosage: PROZAC 80MG QD ORAL
     Route: 048
     Dates: start: 200603, end: 200811
  2. PROZAC [Suspect]
     Indication: EATING DISORDER
     Dosage: PROZAC 80MG QD ORAL
     Route: 048
     Dates: start: 200603, end: 200811

REACTIONS (2)
  - Product substitution issue [None]
  - Drug ineffective [None]
